FAERS Safety Report 6543722-9 (Version None)
Quarter: 2010Q1

REPORT INFORMATION
  Report Type: 
  Country: None (occurrence: None)
  Receive Date: 20100119
  Receipt Date: 20100119
  Transmission Date: 20100710
  Serious: Yes (Other)
  Sender: FDA-Public Use
  Company Number: None

PATIENT
  Age: 92 Year
  Sex: Female
  Weight: 63.5036 kg

DRUGS (2)
  1. TYLENOL [Suspect]
     Indication: FALL
     Dosage: 2 CAPLETS 1200 MG ONCE PO
     Route: 048
     Dates: start: 20100114, end: 20100114
  2. TYLENOL [Suspect]
     Indication: PAIN IN EXTREMITY
     Dosage: 2 CAPLETS 1200 MG ONCE PO
     Route: 048
     Dates: start: 20100114, end: 20100114

REACTIONS (4)
  - ABDOMINAL PAIN UPPER [None]
  - NAUSEA [None]
  - PAIN [None]
  - VOMITING [None]
